FAERS Safety Report 6233301-5 (Version None)
Quarter: 2009Q2

REPORT INFORMATION
  Report Type: 
  Country: None (occurrence: None)
  Receive Date: 20090617
  Receipt Date: 20090611
  Transmission Date: 20091009
  Serious: Yes (Other)
  Sender: FDA-Public Use
  Company Number: GB-MERCK-0605GBR00040

PATIENT
  Sex: Female

DRUGS (2)
  1. FOSAMAX [Suspect]
     Route: 048
     Dates: start: 20060201
  2. CALCIUM (UNSPECIFIED) [Concomitant]
     Route: 065

REACTIONS (1)
  - BLINDNESS [None]
